FAERS Safety Report 15942568 (Version 1)
Quarter: 2019Q1

REPORT INFORMATION
  Report Type: Spontaneous
  Country: US (occurrence: US)
  Receive Date: 20190209
  Receipt Date: 20190209
  Transmission Date: 20190417
  Serious: No
  Sender: FDA-Public Use
  Company Number: US-JNJFOC-20190116246

PATIENT
  Sex: Female

DRUGS (2)
  1. WOMENS ROGAINE UNSCENTED [Suspect]
     Active Substance: MINOXIDIL
     Route: 061
  2. WOMENS ROGAINE UNSCENTED [Suspect]
     Active Substance: MINOXIDIL
     Indication: ALOPECIA
     Dosage: HALF A CAP, ONCE A NIGHT
     Route: 061

REACTIONS (4)
  - Pruritus [Recovered/Resolved]
  - Product use in unapproved indication [Unknown]
  - Contraindicated product administered [Unknown]
  - Alopecia [Not Recovered/Not Resolved]
